FAERS Safety Report 7326097-7 (Version None)
Quarter: 2011Q1

REPORT INFORMATION
  Report Type: 
  Country: None (occurrence: None)
  Receive Date: 20110302
  Receipt Date: 20101215
  Transmission Date: 20110831
  Serious: No
  Sender: FDA-Public Use
  Company Number: US-BAYER-2011-009190

PATIENT
  Sex: Female
  Weight: 52 kg

DRUGS (6)
  1. CITRACAL PETITES [Suspect]
     Indication: VITAMIN SUPPLEMENTATION
  2. VITAMIN D [Concomitant]
  3. ACETYLSALICYLIC ACID SRT [Concomitant]
  4. ASCORBIC ACID [Concomitant]
  5. SIMVASTATIN [Concomitant]
  6. VITAMIN E [Concomitant]

REACTIONS (1)
  - CONSTIPATION [None]
